FAERS Safety Report 12154905 (Version 1)
Quarter: 2016Q1

REPORT INFORMATION
  Report Type: Spontaneous
  Country: US (occurrence: US)
  Receive Date: 20160307
  Receipt Date: 20160307
  Transmission Date: 20160526
  Serious: Yes (Other)
  Sender: FDA-Public Use
  Company Number: CHPA2016US002492

PATIENT
  Age: 45 Year
  Sex: Female

DRUGS (3)
  1. DEXTROMETHORPHAN HYDROBROMIDE. [Suspect]
     Active Substance: DEXTROMETHORPHAN HYDROBROMIDE
     Indication: ATYPICAL PNEUMONIA
     Dosage: UNK (COUGH SYRUP CONTAINING DEXTROMETHORPHAN)
     Route: 048
  2. DEXTROMETHORPHAN HYDROBROMIDE. [Suspect]
     Active Substance: DEXTROMETHORPHAN HYDROBROMIDE
     Dosage: 800 MG, UNK (DXM 800 MG IN A SINGLE DOSAGE, OFTEN MORE THAN ONCE A DAY)
     Route: 065
  3. DEXTROMETHORPHAN HYDROBROMIDE. [Suspect]
     Active Substance: DEXTROMETHORPHAN HYDROBROMIDE
     Dosage: 120 TO 180 MG A DAY
     Route: 065

REACTIONS (17)
  - Psychotic disorder [Recovered/Resolved]
  - Incorrect dose administered [Unknown]
  - Restlessness [Recovered/Resolved]
  - Drug intolerance [Recovered/Resolved]
  - Self injurious behaviour [Recovered/Resolved]
  - Drug dependence [Recovered/Resolved]
  - Hallucinations, mixed [Recovered/Resolved]
  - Tachycardia [Recovered/Resolved]
  - Hyperventilation [Recovered/Resolved]
  - Central nervous system stimulation [Recovered/Resolved]
  - Cerebral disorder [Recovered/Resolved]
  - Depression [Recovered/Resolved]
  - Fatigue [Recovered/Resolved]
  - Euphoric mood [Recovered/Resolved]
  - Drug withdrawal syndrome [Recovered/Resolved]
  - Hyperhidrosis [Recovered/Resolved]
  - Feeling abnormal [Recovered/Resolved]
